FAERS Safety Report 7471577-7 (Version None)
Quarter: 2011Q2

REPORT INFORMATION
  Report Type: 
  Country: None (occurrence: None)
  Receive Date: 20110502
  Receipt Date: 20110124
  Transmission Date: 20111010
  Serious: Yes (Other)
  Sender: FDA-Public Use
  Company Number: PHHY2011US10925

PATIENT
  Age: 9 Year
  Sex: Female

DRUGS (1)
  1. VISUDYNE [Suspect]
     Indication: HAEMANGIOMA OF RETINA
     Dosage: 6 MG/M^2 ONCE IV
     Route: 042

REACTIONS (5)
  - VISUAL ACUITY REDUCED [None]
  - MACULOPATHY [None]
  - OFF LABEL USE [None]
  - HAEMANGIOMA OF RETINA [None]
  - DISEASE PROGRESSION [None]
